FAERS Safety Report 15403882 (Version 1)
Quarter: 2018Q3

REPORT INFORMATION
  Report Type: Report from Study
  Country: MX (occurrence: MX)
  Receive Date: 20180919
  Receipt Date: 20180919
  Transmission Date: 20181010
  Serious: Yes (Hospitalization)
  Sender: FDA-Public Use
  Company Number: PHHY2018MX098032

PATIENT
  Sex: Female

DRUGS (4)
  1. INSULIN [Concomitant]
     Active Substance: INSULIN NOS
     Indication: DIABETES MELLITUS
     Dosage: 30 U, QD (ONLY IN THE MORNING)
     Route: 065
  2. ENTRESTO [Suspect]
     Active Substance: SACUBITRIL\VALSARTAN
     Indication: CARDIAC DISORDER
     Dosage: 2 DF (24MG SACUBITRIL AND 26MG VALSARTAN), QD
     Route: 048
     Dates: start: 20180801
  3. MINIPLUS [Concomitant]
     Indication: BLOOD PRESSURE ABNORMAL
     Dosage: 1 DF, QD
     Route: 065
  4. CARVEDILOL. [Concomitant]
     Active Substance: CARVEDILOL
     Indication: BLOOD PRESSURE ABNORMAL
     Dosage: 2 MG, QD
     Route: 065
     Dates: start: 20180701

REACTIONS (4)
  - Internal haemorrhage [Unknown]
  - Blood glucose decreased [Unknown]
  - Drug prescribing error [Unknown]
  - Product use in unapproved indication [Unknown]
